FAERS Safety Report 9209437 (Version 1)
Quarter: 2013Q1

REPORT INFORMATION
  Report Type: Spontaneous
  Country: US (occurrence: None)
  Receive Date: 20120820
  Receipt Date: 20120820
  Transmission Date: 20140127
  Serious: No
  Sender: FDA-Public Use
  Company Number: 1000030499

PATIENT
  Age: 64 Year
  Sex: Female

DRUGS (5)
  1. VIIBRYD (VILAZODONE) (10 MILLIGRAM TABLETS) [Suspect]
     Indication: DEPRESSION
     Route: 048
     Dates: start: 201203, end: 201203
  2. XANAX (ALPRAZOLAM) (ALPRAZOLAM) [Concomitant]
  3. LAMOTRIGINE (LAMOTRIGINE) (LAMOTRIGINE) [Concomitant]
  4. ALIGN (BIFIDOBACTERIUM INFANTIS) (BIFIDOBACTERIUM INFANTIS) [Concomitant]
  5. LISINOPRIL (LISINOPRIL) (LISINOPRIL) [Concomitant]

REACTIONS (6)
  - Nausea [None]
  - Diarrhoea [None]
  - Insomnia [None]
  - Dizziness [None]
  - Joint stiffness [None]
  - Musculoskeletal stiffness [None]
